FAERS Safety Report 6328065-0 (Version None)
Quarter: 2009Q3

REPORT INFORMATION
  Report Type: 
  Country: None (occurrence: None)
  Receive Date: 20090825
  Receipt Date: 20081118
  Transmission Date: 20100115
  Serious: No
  Sender: FDA-Public Use
  Company Number: US-ABBOTT-08P-163-0486364-00

PATIENT
  Sex: Female
  Weight: 74.002 kg

DRUGS (4)
  1. SYNTHROID [Suspect]
     Indication: BLOOD THYROID STIMULATING HORMONE ABNORMAL
     Route: 048
     Dates: start: 20060601, end: 20080801
  2. SYNTHROID [Suspect]
     Route: 048
     Dates: start: 20080825
  3. WELLBUTRIN [Concomitant]
     Indication: DEPRESSION
     Route: 048
     Dates: start: 20070901, end: 20080801
  4. WELLBUTRIN [Concomitant]
     Route: 048
     Dates: start: 20080825

REACTIONS (5)
  - DEPRESSION [None]
  - HEADACHE [None]
  - HYPERTENSION [None]
  - VOMITING [None]
  - WEIGHT INCREASED [None]
